APPROVED DRUG PRODUCT: RIVASTIGMINE
Active Ingredient: RIVASTIGMINE
Strength: 4.6MG/24HR
Dosage Form/Route: FILM, EXTENDED RELEASE;TRANSDERMAL
Application: A204403 | Product #001
Applicant: ALVOGEN INC
Approved: Sep 3, 2015 | RLD: No | RS: No | Type: DISCN